FAERS Safety Report 18119977 (Version 1)
Quarter: 2020Q3

REPORT INFORMATION
  Report Type: Report from Study
  Country: US (occurrence: US)
  Receive Date: 20200806
  Receipt Date: 20200806
  Transmission Date: 20201103
  Serious: Yes (Other)
  Sender: FDA-Public Use
  Company Number: US-TEVA-2020-US-1809171

PATIENT
  Sex: Female

DRUGS (1)
  1. COPAXONE [Suspect]
     Active Substance: GLATIRAMER ACETATE
     Dosage: FORM STRENGTH: UNKNOWN
     Dates: start: 20020524

REACTIONS (7)
  - Sleep disorder [Unknown]
  - Paraesthesia [Unknown]
  - Injection site pain [Unknown]
  - Gait inability [Unknown]
  - Sciatica [Unknown]
  - Injected limb mobility decreased [Unknown]
  - Weight decreased [Unknown]
